FAERS Safety Report 5310411-8 (Version None)
Quarter: 2007Q2

REPORT INFORMATION
  Report Type: 
  Country: None (occurrence: None)
  Receive Date: 20070427
  Receipt Date: 20070417
  Transmission Date: 20071010
  Serious: Yes (Death, Life-Threatening, Other)
  Sender: FDA-Public Use
  Company Number: GB-JNJFOC-20070403705

PATIENT
  Sex: Female
  Weight: 62 kg

DRUGS (10)
  1. REMICADE [Suspect]
     Indication: RHEUMATOID ARTHRITIS
     Route: 042
  2. LEFLUNOMIDE [Concomitant]
  3. AMITRIPTYLINE HCL [Concomitant]
  4. BENDROFLUAZIDE [Concomitant]
  5. CO-PROXAMOL [Concomitant]
  6. FERROUS SULFATE TAB [Concomitant]
  7. IBUPROFEN [Concomitant]
  8. LISINOPRIL [Concomitant]
  9. NIFEDIPINE [Concomitant]
  10. VOLTAREN [Concomitant]

REACTIONS (1)
  - PANCREATIC CARCINOMA [None]
